FAERS Safety Report 17211007 (Version 3)
Quarter: 2020Q4

REPORT INFORMATION
  Report Type: Spontaneous
  Country: JP (occurrence: JP)
  Receive Date: 20191227
  Receipt Date: 20201221
  Transmission Date: 20210113
  Serious: Yes (Other)
  Sender: FDA-Public Use
  Company Number: NVSJ2019JP006151

PATIENT
  Age: 40 Year
  Sex: Male

DRUGS (3)
  1. COSENTYX [Suspect]
     Active Substance: SECUKINUMAB
     Dosage: 150 MG
     Route: 058
     Dates: start: 202012
  2. COSENTYX [Suspect]
     Active Substance: SECUKINUMAB
     Indication: PSORIATIC ARTHROPATHY
     Dosage: 300 MG
     Route: 058
     Dates: start: 201702, end: 20191214
  3. COSENTYX [Suspect]
     Active Substance: SECUKINUMAB
     Dosage: 150 MG, SECOND ADMINISTRATION
     Route: 058
     Dates: start: 20201208

REACTIONS (3)
  - Folliculitis [Recovered/Resolved]
  - Cellulitis [Recovered/Resolved]
  - Folliculitis [Unknown]

NARRATIVE: CASE EVENT DATE: 201909
